FAERS Safety Report 12193476 (Version 3)
Quarter: 2016Q2

REPORT INFORMATION
  Report Type: Spontaneous
  Country: US (occurrence: US)
  Receive Date: 20160320
  Receipt Date: 20160524
  Transmission Date: 20160815
  Serious: Yes (Hospitalization, Other)
  Sender: FDA-Public Use
  Company Number: US-SHIRE-US201603309

PATIENT
  Age: 11 Year
  Sex: Male
  Weight: 37.6 kg

DRUGS (3)
  1. VYVANSE [Suspect]
     Active Substance: LISDEXAMFETAMINE DIMESYLATE
     Indication: ATTENTION DEFICIT/HYPERACTIVITY DISORDER
     Dosage: 30 MG, 1X/DAY:QD
     Route: 048
     Dates: start: 20160104, end: 20160315
  2. CLONIDINE. [Concomitant]
     Active Substance: CLONIDINE
     Indication: IRRITABILITY
     Dosage: 0.1 MG, 1X/DAY:QD (QHS)
     Route: 048
  3. MELATONIN [Concomitant]
     Active Substance: MELATONIN
     Indication: INSOMNIA
     Dosage: 5-10 MG, 1X/DAY:QD (QHS)
     Route: 048

REACTIONS (4)
  - X-ray gastrointestinal tract abnormal [Recovering/Resolving]
  - Diarrhoea [Recovered/Resolved]
  - Product quality issue [Recovering/Resolving]
  - Constipation [Recovered/Resolved]

NARRATIVE: CASE EVENT DATE: 20160305
